FAERS Safety Report 5155381-0 (Version None)
Quarter: 2006Q4

REPORT INFORMATION
  Report Type: 
  Country: None (occurrence: None)
  Receive Date: 20061114
  Receipt Date: 20061027
  Transmission Date: 20070319
  Serious: No
  Sender: FDA-Public Use
  Company Number: TPA2006A01897

PATIENT
  Age: 45 Year
  Sex: Female
  Weight: 108.8633 kg

DRUGS (17)
  1. ROZEREM [Suspect]
     Indication: INSOMNIA
     Dosage: 8 MG, QHS, PER ORAL
     Route: 048
     Dates: start: 20060929, end: 20061003
  2. PRILOSEC [Concomitant]
  3. NITROFURANTOIN [Concomitant]
  4. CARBIDOPA AND LEVODOPA [Concomitant]
  5. LITHIUM CARBONATE [Concomitant]
  6. ANTISPASMOD (ANTISPASMODICS/ANTICHOLINERGICS) [Concomitant]
  7. HYDROCO/AAP (PARACETAMOL, HYDROCODONE) [Concomitant]
  8. SEROQUEL [Concomitant]
  9. FLUCONAZOLE [Concomitant]
  10. NORVASC [Concomitant]
  11. CLONIDINE [Concomitant]
  12. CARISPRODOL (CARISPRODOL) [Concomitant]
  13. PROMETHAZINE [Concomitant]
  14. MIRTAZAPINE [Concomitant]
  15. VITAMIN (VITAMINS) [Concomitant]
  16. COMPAZINE [Concomitant]
  17. SOMA [Concomitant]

REACTIONS (1)
  - DRUG INEFFECTIVE [None]
